FAERS Safety Report 15130665 (Version 1)
Quarter: 2018Q3

REPORT INFORMATION
  Report Type: Spontaneous
  Country: US (occurrence: US)
  Receive Date: 20180711
  Receipt Date: 20180711
  Transmission Date: 20181010
  Serious: No
  Sender: FDA-Public Use
  Company Number: US-ENDO PHARMACEUTICALS INC-2017-004366

PATIENT
  Sex: Male
  Weight: 104.3 kg

DRUGS (3)
  1. EDEX [Suspect]
     Active Substance: ALPROSTADIL
     Indication: PRODUCT USED FOR UNKNOWN INDICATION
     Dosage: 10 ?G, UNKNOWN
  2. EDEX [Suspect]
     Active Substance: ALPROSTADIL
     Dosage: 20 ?G, UNKNOWN
  3. EDEX [Suspect]
     Active Substance: ALPROSTADIL
     Dosage: 40 ?G, UNKNOWN

REACTIONS (1)
  - Drug effect decreased [Unknown]
